FAERS Safety Report 16424440 (Version 6)
Quarter: 2020Q1

REPORT INFORMATION
  Report Type: Report from Study
  Country: US (occurrence: US)
  Receive Date: 20190613
  Receipt Date: 20200303
  Transmission Date: 20200409
  Serious: No
  Sender: FDA-Public Use
  Company Number: PHEH2019US024971

PATIENT
  Age: 73 Year
  Sex: Female

DRUGS (1)
  1. JADENU [Suspect]
     Active Substance: DEFERASIROX
     Indication: PRODUCT USED FOR UNKNOWN INDICATION
     Dosage: UNK
     Route: 065
     Dates: end: 201911

REACTIONS (3)
  - Blood iron decreased [Unknown]
  - Blood iron increased [Not Recovered/Not Resolved]
  - Iron overload [Unknown]

NARRATIVE: CASE EVENT DATE: 20191218
